FAERS Safety Report 6686379-9 (Version None)
Quarter: 2010Q2

REPORT INFORMATION
  Report Type: 
  Country: None (occurrence: None)
  Receive Date: 20100419
  Receipt Date: 20100409
  Transmission Date: 20101027
  Serious: Yes (Hospitalization)
  Sender: FDA-Public Use
  Company Number: US-JNJFOC-20100402912

PATIENT
  Sex: Male
  Weight: 71.22 kg

DRUGS (12)
  1. GALANTAMINE [Suspect]
     Indication: DEMENTIA
     Route: 048
  2. INSULIN [Concomitant]
     Indication: DIABETES MELLITUS
     Route: 058
  3. TOPROL-XL [Concomitant]
     Indication: BLOOD PRESSURE
     Route: 048
  4. MULTI-VITAMINS [Concomitant]
     Indication: VITAMIN SUPPLEMENTATION
     Route: 048
  5. MYCOPHENOLIC ACID [Concomitant]
     Indication: RENAL TRANSPLANT
     Route: 048
  6. OMEPRAZOLE [Concomitant]
     Indication: ULCER
     Route: 048
  7. PREDNISONE [Concomitant]
     Indication: RENAL DISORDER
     Route: 048
  8. PSYLLIUM [Concomitant]
     Indication: PROPHYLAXIS
     Dosage: 1 GRANULE
     Route: 048
  9. CLONIDINE [Concomitant]
     Indication: BLOOD PRESSURE
     Route: 062
  10. CYCLOSPORINE [Concomitant]
     Indication: RENAL DISORDER
     Route: 048
  11. CELEXA [Concomitant]
     Indication: DEPRESSION
     Route: 048
  12. AMLODIPINE [Concomitant]
     Indication: BLOOD PRESSURE
     Route: 048

REACTIONS (9)
  - CONVULSION [None]
  - DYSPNOEA [None]
  - FALL [None]
  - FLUSHING [None]
  - HYPERHIDROSIS [None]
  - MYOCARDIAL INFARCTION [None]
  - RENAL FAILURE [None]
  - SWOLLEN TONGUE [None]
  - WEIGHT INCREASED [None]
